FAERS Safety Report 16500719 (Version 2)
Quarter: 2019Q3

REPORT INFORMATION
  Report Type: Report from Study
  Country: IT (occurrence: IT)
  Receive Date: 20190701
  Receipt Date: 20190708
  Transmission Date: 20191004
  Serious: Yes (Death, Life-Threatening, Hospitalization)
  Sender: FDA-Public Use
  Company Number: IT-ROCHE-2341195

PATIENT
  Age: 69 Year
  Sex: Male

DRUGS (2)
  1. MYCOPHENOLATE MOFETIL. [Suspect]
     Active Substance: MYCOPHENOLATE MOFETIL
     Indication: IMMUNOSUPPRESSANT DRUG THERAPY
     Dosage: FROM DAY 0
     Route: 048
  2. CICLOSPORIN A [Suspect]
     Active Substance: CYCLOSPORINE
     Indication: IMMUNOSUPPRESSANT DRUG THERAPY
     Dosage: FROM DAY 0
     Route: 065
     Dates: start: 2017

REACTIONS (7)
  - Neutropenia [Fatal]
  - Klebsiella bacteraemia [Unknown]
  - Respiratory failure [Fatal]
  - Septic shock [Fatal]
  - Enterococcal infection [Unknown]
  - Haemorrhage [Fatal]
  - Staphylococcal infection [Unknown]

NARRATIVE: CASE EVENT DATE: 2017
